FAERS Safety Report 10459819 (Version 2)
Quarter: 2020Q4

REPORT INFORMATION
  Report Type: Spontaneous
  Country: IT (occurrence: IT)
  Receive Date: 20140917
  Receipt Date: 20201015
  Transmission Date: 20210113
  Serious: Yes (Other)
  Sender: FDA-Public Use
  Company Number: IT-TEVA-509075ISR

PATIENT
  Age: 64 Year
  Sex: Female
  Weight: 80 kg

DRUGS (5)
  1. FLUOROURACILE AHCL [Suspect]
     Active Substance: FLUOROURACIL
     Indication: COLON CANCER METASTATIC
     Dosage: 480 MILLIGRAM DAILY;
     Route: 040
     Dates: start: 20140103, end: 20140613
  2. OXALIPLATINO SUN [Suspect]
     Active Substance: OXALIPLATIN
     Indication: COLON CANCER METASTATIC
     Dosage: 100 MILLIGRAM DAILY;
     Route: 042
     Dates: start: 20140103, end: 20140613
  3. FLUOROURACILE AHCL [Suspect]
     Active Substance: FLUOROURACIL
     Dosage: 1440 MILLIGRAM DAILY;
     Route: 041
     Dates: start: 20140103, end: 20140613
  4. AVASTIN [Concomitant]
     Active Substance: BEVACIZUMAB
     Indication: COLON CANCER METASTATIC
     Dosage: 400 MILLIGRAM DAILY;
     Route: 042
     Dates: start: 20140103, end: 20140613
  5. CALCIO LEVOFOLINATO TEVA [Suspect]
     Active Substance: LEVOLEUCOVORIN CALCIUM
     Dosage: 100 MILLIGRAM DAILY; POWDER FOR SOLUTION FOR INTRAVENOUS INFUSION
     Route: 042
     Dates: start: 20140103, end: 20140613

REACTIONS (2)
  - Abdominal pain [Recovered/Resolved]
  - Diarrhoea [Recovered/Resolved]

NARRATIVE: CASE EVENT DATE: 20140615
